FAERS Safety Report 8785871 (Version 2)
Quarter: 2012Q4

REPORT INFORMATION
  Report Type: 
  Country: JP (occurrence: JP)
  Receive Date: 20120914
  Receipt Date: 20121001
  Transmission Date: 20130627
  Serious: Yes (Other)
  Sender: FDA-Public Use
  Company Number: PHHY2012JP079658

PATIENT
  Sex: Female

DRUGS (2)
  1. AREDIA [Suspect]
     Indication: HYPERCALCAEMIA
     Dosage: 15 mg, per administration
     Route: 041
  2. ZOMETA [Suspect]
     Indication: HYPERCALCAEMIA
     Dosage: 4 mg,
     Route: 041

REACTIONS (8)
  - Osteoarthritis [Unknown]
  - Gait disturbance [Unknown]
  - Pain in extremity [Unknown]
  - Arthralgia [Unknown]
  - Pain [Unknown]
  - Femur fracture [Unknown]
  - Fracture nonunion [Unknown]
  - Synostosis [Unknown]
